FAERS Safety Report 20032432 (Version 3)
Quarter: 2021Q4

REPORT INFORMATION
  Report Type: Report from Study
  Country: US (occurrence: US)
  Receive Date: 20211103
  Receipt Date: 20211210
  Transmission Date: 20220303
  Serious: Yes (Other)
  Sender: FDA-Public Use
  Company Number: US-SEATTLE GENETICS-2021SGN05583

PATIENT
  Age: 71 Year
  Sex: Female

DRUGS (3)
  1. TUCATINIB [Suspect]
     Active Substance: TUCATINIB
     Indication: Breast cancer female
     Dosage: UNK
     Route: 065
     Dates: end: 20211026
  2. TUCATINIB [Suspect]
     Active Substance: TUCATINIB
     Dosage: UNK
     Route: 065
  3. CAPECITABINE [Suspect]
     Active Substance: CAPECITABINE
     Indication: Breast cancer female
     Dosage: 1000 MG, BID, 14 DAYS ON 7 DAYS OFF
     Route: 065
     Dates: end: 20211026

REACTIONS (12)
  - Syncope [Unknown]
  - Asthenia [Unknown]
  - Unevaluable event [Unknown]
  - Defaecation urgency [Unknown]
  - Dehydration [Unknown]
  - Amnesia [Unknown]
  - Sluggishness [Unknown]
  - Fatigue [Unknown]
  - Product communication issue [Unknown]
  - Malaise [Unknown]
  - Decreased appetite [Unknown]
  - Diarrhoea [Recovering/Resolving]

NARRATIVE: CASE EVENT DATE: 20211027
